FAERS Safety Report 9913526 (Version 1)
Quarter: 2014Q1

REPORT INFORMATION
  Report Type: Spontaneous
  Country: US (occurrence: None)
  Receive Date: 20140214
  Receipt Date: 20140214
  Transmission Date: 20141002
  Serious: Yes (Other)
  Sender: FDA-Public Use
  Company Number: 2014AP001060

PATIENT
  Sex: Male

DRUGS (2)
  1. RISPERIDONE TABLETS [Suspect]
  2. RISPERIDONE [Concomitant]

REACTIONS (2)
  - Breast swelling [None]
  - Hepatic cancer stage IV [None]
